FAERS Safety Report 5606390-6 (Version None)
Quarter: 2008Q1

REPORT INFORMATION
  Report Type: 
  Country: None (occurrence: None)
  Receive Date: 20080129
  Receipt Date: 20070910
  Transmission Date: 20080703
  Serious: No
  Sender: FDA-Public Use
  Company Number: A0677836A

PATIENT
  Sex: Female

DRUGS (3)
  1. WELLBUTRIN [Suspect]
     Indication: DRUG USE FOR UNKNOWN INDICATION
     Route: 065
  2. CYMBALTA [Suspect]
     Indication: DRUG USE FOR UNKNOWN INDICATION
  3. ATIVAN [Suspect]
     Indication: DRUG USE FOR UNKNOWN INDICATION

REACTIONS (5)
  - ALOPECIA [None]
  - DRY SKIN [None]
  - OEDEMA PERIPHERAL [None]
  - SOMNOLENCE [None]
  - WEIGHT DECREASED [None]
